FAERS Safety Report 7601588-X (Version None)
Quarter: 2011Q3

REPORT INFORMATION
  Report Type: 
  Country: None (occurrence: None)
  Receive Date: 20110711
  Receipt Date: 20110628
  Transmission Date: 20111222
  Serious: Yes (Hospitalization, Other)
  Sender: FDA-Public Use
  Company Number: PHHY2011FR54538

PATIENT
  Sex: Male
  Weight: 85 kg

DRUGS (3)
  1. RASILEZ HCT [Suspect]
     Indication: HYPERTENSION
     Dosage: 150/25 MG DALIY
     Route: 048
     Dates: start: 20100604, end: 20101004
  2. LEVOTHYROXINE SODIUM [Concomitant]
     Dosage: 150 UG,DAILY
     Route: 048
     Dates: start: 19940101
  3. RASILEZ [Suspect]
     Indication: HYPERTENSION
     Dosage: 150 MG DAILY
     Route: 048
     Dates: start: 20100304, end: 20100604

REACTIONS (1)
  - NEPHROLITHIASIS [None]
